FAERS Safety Report 6999116-5 (Version None)
Quarter: 2010Q3

REPORT INFORMATION
  Report Type: 
  Country: None (occurrence: None)
  Receive Date: 20100920
  Receipt Date: 20090915
  Transmission Date: 20110219
  Serious: No
  Sender: FDA-Public Use
  Company Number: US-ASTRAZENECA-2009SE13688

PATIENT
  Age: 57 Year
  Sex: Female
  Weight: 77.1 kg

DRUGS (10)
  1. SEROQUEL XR [Suspect]
     Indication: HALLUCINATION
     Route: 048
     Dates: start: 20090909
  2. WELLBUTRIN [Concomitant]
  3. REMERON [Concomitant]
  4. KLONOPIN [Concomitant]
  5. NEXIUM [Concomitant]
  6. SIMVASTATIN [Concomitant]
  7. ASPIRIN [Concomitant]
  8. ALLEGRA [Concomitant]
  9. NASACORT AQ [Concomitant]
     Indication: ASTHMA
  10. VITAMIN D [Concomitant]

REACTIONS (2)
  - BLOOD PRESSURE INCREASED [None]
  - HEART RATE INCREASED [None]
